FAERS Safety Report 15715237 (Version 2)
Quarter: 2018Q4

REPORT INFORMATION
  Report Type: Report from Study
  Country: FR (occurrence: FR)
  Receive Date: 20181212
  Receipt Date: 20181231
  Transmission Date: 20190205
  Serious: Yes (Hospitalization)
  Sender: FDA-Public Use
  Company Number: FR-OTSUKA-2018_038534

PATIENT
  Age: 75 Year
  Sex: Female

DRUGS (8)
  1. KARDEGIC [Concomitant]
     Active Substance: ASPIRIN DL-LYSINE
     Indication: PRODUCT USED FOR UNKNOWN INDICATION
     Dosage: 75 NG, UNK
     Route: 065
     Dates: start: 20180318
  2. DECITABINE. [Suspect]
     Active Substance: DECITABINE
     Dosage: 32 MG, IN 1 DAY
     Route: 042
     Dates: start: 20181119
  3. EXJADE [Concomitant]
     Active Substance: DEFERASIROX
     Indication: PRODUCT USED FOR UNKNOWN INDICATION
     Dosage: 500 NG, UNK
     Route: 048
     Dates: start: 20170417
  4. TANGANIL [Concomitant]
     Active Substance: ACETYLLEUCINE
     Indication: VERTIGO
     Dosage: 1500 NG, UNK
     Route: 048
     Dates: start: 20171202
  5. ALLOPURINOL. [Concomitant]
     Active Substance: ALLOPURINOL
     Indication: PROPHYLAXIS
     Dosage: 2000 NG, UNK
     Route: 048
     Dates: start: 20170424
  6. ATENOL [Concomitant]
     Active Substance: ATENOLOL
     Indication: PRODUCT USED FOR UNKNOWN INDICATION
     Dosage: UNK
     Route: 065
  7. DECITABINE. [Suspect]
     Active Substance: DECITABINE
     Indication: CHRONIC MYELOMONOCYTIC LEUKAEMIA
     Dosage: 32 MG, IN 1 DAY CYCLE 1
     Route: 042
     Dates: start: 20170424, end: 20170428
  8. ZOCOR [Concomitant]
     Active Substance: SIMVASTATIN
     Indication: HYPERTENSION
     Dosage: 20 NG, UNK
     Route: 065

REACTIONS (2)
  - Haematemesis [Recovered/Resolved]
  - Vomiting [Recovered/Resolved]

NARRATIVE: CASE EVENT DATE: 20181201
